FAERS Safety Report 4852708-1 (Version None)
Quarter: 2005Q4

REPORT INFORMATION
  Report Type: 
  Country: None (occurrence: None)
  Receive Date: 20051213
  Receipt Date: 20051207
  Transmission Date: 20060501
  Serious: Yes (Hospitalization)
  Sender: FDA-Public Use
  Company Number: US-MERCK-0512USA00919

PATIENT
  Age: 54 Year
  Sex: Female

DRUGS (3)
  1. VYTORIN [Suspect]
     Indication: BLOOD CHOLESTEROL INCREASED
     Route: 048
     Dates: start: 20050101, end: 20051001
  2. PRINIVIL [Concomitant]
     Route: 048
  3. GLUCOPHAGE [Concomitant]
     Route: 065

REACTIONS (4)
  - AMNESIA [None]
  - FALL [None]
  - MYALGIA [None]
  - VISION BLURRED [None]
